FAERS Safety Report 17854101 (Version 6)
Quarter: 2024Q3

REPORT INFORMATION
  Report Type: Spontaneous
  Country: DE (occurrence: DE)
  Receive Date: 20200603
  Receipt Date: 20240826
  Transmission Date: 20241016
  Serious: Yes (Hospitalization, Disabling, Other)
  Sender: AUROBINDO
  Company Number: DE-MLMSERVICE-20200515-2304547-1

PATIENT
  Age: 29 Year
  Sex: Male

DRUGS (11)
  1. ARIPIPRAZOLE [Suspect]
     Active Substance: ARIPIPRAZOLE
     Indication: Schizophrenia
     Dosage: UNK (LOW-DOSE)
     Route: 065
  2. ARIPIPRAZOLE [Suspect]
     Active Substance: ARIPIPRAZOLE
     Indication: Hallucination
     Dosage: 5 MILLIGRAM, ONCE A DAY
     Route: 048
  3. OLANZAPINE [Suspect]
     Active Substance: OLANZAPINE
     Indication: Schizophrenia
     Dosage: 405 MILLIGRAM 4 WEEKS (DEPOT)
     Route: 030
  4. OLANZAPINE [Suspect]
     Active Substance: OLANZAPINE
     Dosage: 15 MILLIGRAM, ONCE A DAY
     Route: 048
  5. RISPERIDONE [Concomitant]
     Active Substance: RISPERIDONE
     Indication: Schizophrenia
     Dosage: 5 MILLIGRAM, ONCE A DAY
     Route: 048
  6. RISPERIDONE [Concomitant]
     Active Substance: RISPERIDONE
     Indication: Psychotic disorder
     Dosage: 37.5 MILLIGRAM/SQ. METER (PER 2 WEEKS)
     Route: 030
  7. RISPERIDONE [Concomitant]
     Active Substance: RISPERIDONE
     Indication: Hallucination
  8. HALOPERIDOL [Concomitant]
     Active Substance: HALOPERIDOL
     Indication: Schizophrenia
     Dosage: 20 MILLIGRAM, ONCE A DAY,GRADUALLY TAPERED OFF
     Route: 048
  9. HALOPERIDOL [Concomitant]
     Active Substance: HALOPERIDOL
     Indication: Hallucination
  10. LORAZEPAM [Concomitant]
     Active Substance: LORAZEPAM
     Indication: Schizophrenia
     Dosage: 4 MILLIGRAM, ONCE A DAY
     Route: 048
  11. LORAZEPAM [Concomitant]
     Active Substance: LORAZEPAM
     Indication: Hallucination
     Dosage: UNK, TAPERED OFF
     Route: 065

REACTIONS (5)
  - Compulsive sexual behaviour [Recovered/Resolved]
  - Paraphilia [Recovered/Resolved]
  - Hypersexuality [Recovered/Resolved]
  - Exhibitionism [Recovered/Resolved]
  - Disease recurrence [Recovered/Resolved]
